FAERS Safety Report 12094724 (Version 4)
Quarter: 2016Q3

REPORT INFORMATION
  Report Type: Spontaneous
  Country: US (occurrence: US)
  Receive Date: 20160219
  Receipt Date: 20160912
  Transmission Date: 20161109
  Serious: Yes (Hospitalization)
  Sender: FDA-Public Use
  Company Number: US-JNJFOC-20160217465

PATIENT
  Age: 80 Year
  Sex: Female

DRUGS (1)
  1. XARELTO [Suspect]
     Active Substance: RIVAROXABAN
     Indication: ANTICOAGULANT THERAPY
     Dosage: TREATMENT WITH RIVAROXABAN FROM ON AUG-2015 TILL SEP-2015. 10MG-20 MG
     Route: 048

REACTIONS (1)
  - Internal haemorrhage [Unknown]

NARRATIVE: CASE EVENT DATE: 20150909
